FAERS Safety Report 5793344-2 (Version None)
Quarter: 2008Q2

REPORT INFORMATION
  Report Type: 
  Country: None (occurrence: None)
  Receive Date: 20080627
  Receipt Date: 20080624
  Transmission Date: 20081010
  Serious: Yes (Hospitalization)
  Sender: FDA-Public Use
  Company Number: B0459730A

PATIENT
  Age: 57 Year
  Sex: Female
  Weight: 50.1 kg

DRUGS (2)
  1. LAPATINIB [Suspect]
     Dosage: 1250MG PER DAY
     Route: 048
     Dates: start: 20061219, end: 20070202
  2. CAPECITABINE [Suspect]
     Dosage: 1500MGM2 TWICE PER DAY
     Route: 048
     Dates: start: 20060929, end: 20070216

REACTIONS (6)
  - ANXIETY [None]
  - CARDIOMYOPATHY [None]
  - DISEASE PROGRESSION [None]
  - DYSPNOEA [None]
  - PALPITATIONS [None]
  - PRODUCTIVE COUGH [None]
